FAERS Safety Report 5862849-8 (Version None)
Quarter: 2008Q3

REPORT INFORMATION
  Report Type: 
  Country: None (occurrence: None)
  Receive Date: 20080828
  Receipt Date: 20080821
  Transmission Date: 20090109
  Serious: Yes (Hospitalization)
  Sender: FDA-Public Use
  Company Number: A0713322A

PATIENT
  Age: 67 Year
  Sex: Male
  Weight: 67.3 kg

DRUGS (3)
  1. AVANDIA [Suspect]
     Dosage: 8NG PER DAY
     Route: 048
     Dates: start: 20000823, end: 20010601
  2. MICRONASE [Concomitant]
  3. GLUCOPHAGE [Concomitant]

REACTIONS (6)
  - APPARENT DEATH [None]
  - ARTERIAL STENOSIS [None]
  - CHEST PAIN [None]
  - MYOCARDIAL INFARCTION [None]
  - PAIN [None]
  - POST PROCEDURAL COMPLICATION [None]
